FAERS Safety Report 6337418-6 (Version None)
Quarter: 2009Q3

REPORT INFORMATION
  Report Type: 
  Country: None (occurrence: None)
  Receive Date: 20090901
  Receipt Date: 20090901
  Transmission Date: 20100115
  Serious: Yes (Hospitalization)
  Sender: FDA-Public Use
  Company Number: None

PATIENT
  Age: 69 Year
  Sex: Female
  Weight: 134.7183 kg

DRUGS (2)
  1. PROTONIX [Suspect]
     Indication: GASTROOESOPHAGEAL REFLUX DISEASE
     Dosage: 40MG DAILY PO
     Route: 048
     Dates: start: 20090709, end: 20090720
  2. PROTONIX [Suspect]
     Indication: PROPHYLAXIS
     Dosage: 40MG DAILY PO
     Route: 048
     Dates: start: 20090709, end: 20090720

REACTIONS (1)
  - THROMBOCYTOPENIA [None]
